FAERS Safety Report 15803014 (Version 1)
Quarter: 2019Q1

REPORT INFORMATION
  Report Type: Spontaneous
  Country: US (occurrence: US)
  Receive Date: 20190109
  Receipt Date: 20190109
  Transmission Date: 20190417
  Serious: Yes (Hospitalization, Other)
  Sender: FDA-Public Use
  Company Number: US-JNJFOC-20190107689

PATIENT
  Age: 71 Year
  Sex: Male

DRUGS (1)
  1. INVOKANA [Suspect]
     Active Substance: CANAGLIFLOZIN
     Indication: TYPE 2 DIABETES MELLITUS
     Route: 048
     Dates: start: 20150721, end: 20150921

REACTIONS (9)
  - Extremity necrosis [Unknown]
  - Wound [Unknown]
  - Cellulitis [Unknown]
  - Diabetic foot infection [Unknown]
  - Fall [Unknown]
  - Dry gangrene [Unknown]
  - Osteomyelitis [Unknown]
  - Limb amputation [Unknown]
  - Wound infection [Unknown]

NARRATIVE: CASE EVENT DATE: 201509
